FAERS Safety Report 8145028-3 (Version None)
Quarter: 2012Q1

REPORT INFORMATION
  Report Type: 
  Country: None (occurrence: None)
  Receive Date: 20120217
  Receipt Date: 20120207
  Transmission Date: 20120608
  Serious: Yes (Hospitalization)
  Sender: FDA-Public Use
  Company Number: PHHO2012TW002320

PATIENT
  Sex: Female

DRUGS (2)
  1. EVEROLIMUS [Suspect]
     Indication: PANCREATIC NEUROENDOCRINE TUMOUR
     Dosage: 5 MG, UNK
     Route: 048
     Dates: start: 20090212, end: 20120123
  2. EVEROLIMUS [Suspect]
     Dosage: 5 MG, UNK
     Route: 048
     Dates: start: 20120131

REACTIONS (1)
  - UPPER GASTROINTESTINAL HAEMORRHAGE [None]
